FAERS Safety Report 5442204-5 (Version None)
Quarter: 2007Q3

REPORT INFORMATION
  Report Type: 
  Country: None (occurrence: None)
  Receive Date: 20070731
  Receipt Date: 20070503
  Transmission Date: 20080115
  Serious: No
  Sender: FDA-Public Use
  Company Number: US200705001327

PATIENT
  Sex: Male

DRUGS (1)
  1. BYETTA [Suspect]
     Dosage: 5 UG, SUBCUTANEOUS   10 UG, SUBCUTANEOUS
     Route: 058

REACTIONS (4)
  - DRUG INEFFECTIVE [None]
  - INJECTION SITE BRUISING [None]
  - INJECTION SITE ERYTHEMA [None]
  - INJECTION SITE VESICLES [None]
